FAERS Safety Report 11670205 (Version 1)
Quarter: 2015Q4

REPORT INFORMATION
  Report Type: Spontaneous
  Country: US (occurrence: US)
  Receive Date: 20151027
  Receipt Date: 20151027
  Transmission Date: 20160304
  Serious: No
  Sender: FDA-Public Use
  Company Number: US-ELI_LILLY_AND_COMPANY-US201004008210

PATIENT
  Age: 79 Year
  Sex: Female

DRUGS (3)
  1. FOSAMAX [Concomitant]
     Active Substance: ALENDRONATE SODIUM
     Dosage: UNK, UNKNOWN
     Route: 065
  2. RECLAST [Concomitant]
     Active Substance: ZOLEDRONIC ACID
     Dosage: UNK, UNKNOWN
     Route: 065
  3. FORTEO [Suspect]
     Active Substance: TERIPARATIDE
     Indication: OSTEOPOROSIS
     Dosage: 20 UG, DAILY (1/D)
     Route: 065
     Dates: start: 20100415

REACTIONS (3)
  - Heart rate increased [Unknown]
  - Atrial fibrillation [Unknown]
  - Asthenia [Unknown]

NARRATIVE: CASE EVENT DATE: 201004
